FAERS Safety Report 5787487-7 (Version None)
Quarter: 2008Q2

REPORT INFORMATION
  Report Type: 
  Country: None (occurrence: None)
  Receive Date: 20080620
  Receipt Date: 20080606
  Transmission Date: 20081010
  Serious: Yes (Hospitalization)
  Sender: FDA-Public Use
  Company Number: 2008AL005075

PATIENT
  Age: 42 Year
  Sex: Male
  Weight: 124.7392 kg

DRUGS (10)
  1. DIGOXIN [Suspect]
     Indication: CARDIAC FAILURE CONGESTIVE
     Dosage: 0.25 MG, DAILY, PO
     Route: 048
     Dates: start: 20040101
  2. LASIX [Concomitant]
  3. COREG [Concomitant]
  4. SPIRONOLACTONE [Concomitant]
  5. MAG64D [Concomitant]
  6. ASPIRIN [Concomitant]
  7. SIMVASTATIN [Concomitant]
  8. METOLAZONE [Concomitant]
  9. LISINOPRIL [Concomitant]
  10. NIASPAN [Concomitant]

REACTIONS (6)
  - FALL [None]
  - HEART RATE DECREASED [None]
  - HYPOTENSION [None]
  - LOSS OF CONSCIOUSNESS [None]
  - VISION BLURRED [None]
  - VISUAL BRIGHTNESS [None]
